FAERS Safety Report 9391702 (Version 3)
Quarter: 2013Q3

REPORT INFORMATION
  Report Type: Report from Study
  Country: BG (occurrence: BG)
  Receive Date: 20130709
  Receipt Date: 20130825
  Transmission Date: 20140515
  Serious: Yes (Hospitalization)
  Sender: FDA-Public Use
  Company Number: PHHO2013BG008731

PATIENT
  Age: 56 Year
  Sex: Male
  Weight: 78.9 kg

DRUGS (7)
  1. METHOTREXATE SANDOZ [Suspect]
     Indication: RHEUMATOID ARTHRITIS
     Dosage: 20 UG, QW
     Dates: start: 20110223, end: 20130611
  2. BLINDED AIN457 [Suspect]
     Indication: RHEUMATOID ARTHRITIS
     Dosage: UNK
     Dates: start: 20120418, end: 20130328
  3. BLINDED NO TREATMENT RECEIVED [Suspect]
     Indication: RHEUMATOID ARTHRITIS
     Dosage: UNK
     Dates: start: 20120418, end: 20130328
  4. BLINDED PLACEBO [Suspect]
     Indication: RHEUMATOID ARTHRITIS
     Dosage: UNK
     Dates: start: 20120418, end: 20130328
  5. FOLIC ACID [Concomitant]
     Indication: RHEUMATOID ARTHRITIS
     Dosage: 0.8 MG, UNK
  6. OMEPRAZID [Concomitant]
     Indication: PROPHYLAXIS
     Dosage: 40 MG, QD
     Dates: start: 20120203
  7. FOSTER                             /06206901/ [Concomitant]
     Indication: ASTHMA
     Dosage: UNK

REACTIONS (1)
  - Myelodysplastic syndrome [Recovered/Resolved]
